FAERS Safety Report 6419108-4 (Version None)
Quarter: 2009Q4

REPORT INFORMATION
  Report Type: 
  Country: None (occurrence: None)
  Receive Date: 20091028
  Receipt Date: 20091028
  Transmission Date: 20100525
  Serious: Yes (Life-Threatening, Other)
  Sender: FDA-Public Use
  Company Number: None

PATIENT
  Age: 64 Year
  Sex: Female
  Weight: 63.5036 kg

DRUGS (1)
  1. NEULASTA [Suspect]
     Indication: WHITE BLOOD CELL COUNT DECREASED
     Dates: start: 20040406, end: 20041028

REACTIONS (1)
  - BONE PAIN [None]
